FAERS Safety Report 8692339 (Version 2)
Quarter: 2012Q4

REPORT INFORMATION
  Report Type: 
  Country: MX (occurrence: MX)
  Receive Date: 20120730
  Receipt Date: 20120828
  Transmission Date: 20130627
  Serious: Yes (Death, Hospitalization)
  Sender: FDA-Public Use
  Company Number: PHHY2012MX065192

PATIENT
  Sex: Female

DRUGS (1)
  1. ACLASTA [Suspect]
     Indication: OSTEOPOROSIS
     Dosage: 5 mg, yearly
     Route: 042

REACTIONS (5)
  - Malignant neoplasm progression [Fatal]
  - Cardiac failure [Fatal]
  - Respiratory failure [Fatal]
  - General physical health deterioration [Unknown]
  - Fatigue [Unknown]
